FAERS Safety Report 8335073-7 (Version None)
Quarter: 2012Q2

REPORT INFORMATION
  Report Type: 
  Country: None (occurrence: None)
  Receive Date: 20120503
  Receipt Date: 20120426
  Transmission Date: 20120825
  Serious: Yes (Other)
  Sender: FDA-Public Use
  Company Number: US-UCBSA-056320

PATIENT
  Age: 18 Year

DRUGS (1)
  1. LACOSAMIDE [Suspect]

REACTIONS (2)
  - PETIT MAL EPILEPSY [None]
  - CONVULSION [None]
